FAERS Safety Report 21495005 (Version 1)
Quarter: 2022Q4

REPORT INFORMATION
  Report Type: Spontaneous
  Country: US (occurrence: US)
  Receive Date: 20221022
  Receipt Date: 20221022
  Transmission Date: 20230112
  Serious: No
  Sender: FDA-Public Use
  Company Number: US-CELLTRION INC.-2022US005105

PATIENT

DRUGS (3)
  1. INFLECTRA [Suspect]
     Active Substance: INFLIXIMAB-DYYB
     Indication: Rheumatoid arthritis
     Dosage: DIRECTIONS 320MG, FREQUENCY: WKS 0,2,6, Q6 WEEKS, QUANTITY 12, REFILLS 1
     Route: 065
  2. INFLECTRA [Suspect]
     Active Substance: INFLIXIMAB-DYYB
     Dosage: DIRECTIONS: INJECT 320MG OF INFLECTRA FREQUENCY: LOADING DOSE WKS 0,2,6 QUANTITY: 12 VIALS REFILLS:
     Route: 065
  3. INFLECTRA [Suspect]
     Active Substance: INFLIXIMAB-DYYB
     Dosage: DIRECTIONS: INJECT 320MG FREQUENCY: 0,2,6 EVERY 6 WEEKS QUANTITY: 12 REFILLS: NONE
     Route: 065

REACTIONS (1)
  - Off label use [Unknown]
